FAERS Safety Report 8303048-X (Version None)
Quarter: 2012Q2

REPORT INFORMATION
  Report Type: 
  Country: None (occurrence: None)
  Receive Date: 20120422
  Receipt Date: 20120315
  Transmission Date: 20120825
  Serious: Yes (Hospitalization)
  Sender: FDA-Public Use
  Company Number: DE-BAXTER-2012BAX000179

PATIENT
  Age: 70 Year
  Sex: Male

DRUGS (8)
  1. VITAMIN D [Concomitant]
     Route: 065
  2. PHYSIONEAL 35 GLUCOSE 1,36 % W/V 13,6 MG/ML PERITONEALDIALYSELOSUNG [Suspect]
     Route: 033
     Dates: start: 20010425
  3. ANGIOTENSIN II [Concomitant]
     Route: 048
  4. NUTRINEAL [Suspect]
  5. NUTRINEAL [Suspect]
  6. EXTRANEAL [Suspect]
     Route: 033
     Dates: start: 20010425
  7. BETA BLOCKERS [Concomitant]
     Route: 048
  8. NUTRINEAL [Suspect]
     Route: 033
     Dates: start: 20010425

REACTIONS (1)
  - INFLAMMATION [None]
